FAERS Safety Report 11620592 (Version 4)
Quarter: 2016Q1

REPORT INFORMATION
  Report Type: Report from Study
  Country: CZ (occurrence: CZ)
  Receive Date: 20151012
  Receipt Date: 20160126
  Transmission Date: 20160525
  Serious: Yes (Hospitalization, Other)
  Sender: FDA-Public Use
  Company Number: CZ-GILEAD-2015-0175938

PATIENT
  Age: 65 Year
  Sex: Male
  Weight: 79 kg

DRUGS (11)
  1. BETAHISTINE [Concomitant]
     Active Substance: BETAHISTINE
  2. MILURIT [Concomitant]
     Active Substance: ALLOPURINOL
  3. IDELALISIB [Suspect]
     Active Substance: IDELALISIB
     Indication: B-CELL LYMPHOMA
     Dosage: 150 MG, BID
     Route: 048
     Dates: start: 20150302, end: 20150312
  4. GORDIUS [Concomitant]
  5. TELMISARTAN. [Concomitant]
     Active Substance: TELMISARTAN
  6. BENDAMUSTINE [Suspect]
     Active Substance: BENDAMUSTINE
     Indication: B-CELL LYMPHOMA
     Dosage: 60 MG/M2, CYCLICAL
     Route: 042
     Dates: start: 20150818, end: 20150819
  7. IDELALISIB [Suspect]
     Active Substance: IDELALISIB
     Dosage: 100 MG, BID
     Route: 048
     Dates: start: 20150609
  8. BENDAMUSTINE [Suspect]
     Active Substance: BENDAMUSTINE
     Dosage: 90 MG/M2, CYCLICAL
     Route: 042
     Dates: start: 20150302, end: 20150715
  9. RITUXIMAB [Suspect]
     Active Substance: RITUXIMAB
     Indication: B-CELL LYMPHOMA
     Dosage: 375 MG/M2, CYCLICAL
     Route: 042
     Dates: start: 20150302, end: 20150818
  10. DETRALEX [Concomitant]
     Active Substance: DIOSMIN\HESPERIDIN
  11. THEOPLUS [Concomitant]
     Dosage: 300 MG, UNK

REACTIONS (1)
  - Salmonellosis [Recovered/Resolved]

NARRATIVE: CASE EVENT DATE: 20151003
